FAERS Safety Report 8201558-7 (Version None)
Quarter: 2012Q1

REPORT INFORMATION
  Report Type: 
  Country: None (occurrence: None)
  Receive Date: 20120312
  Receipt Date: 20120203
  Transmission Date: 20120608
  Serious: Yes (Hospitalization)
  Sender: FDA-Public Use
  Company Number: FR-ELI_LILLY_AND_COMPANY-FR201201000794

PATIENT
  Age: 85 Year
  Sex: Female

DRUGS (12)
  1. ZOLPIDEM [Concomitant]
  2. FENOFIBRATE [Concomitant]
  3. LOSARTAN POTASSIUM AND HYDROCHLOROTHIAZIDE [Concomitant]
  4. SMECTA                             /01255901/ [Concomitant]
  5. LEXOMIL [Concomitant]
  6. GAVISCON [Concomitant]
  7. LERCANIDIPINE [Concomitant]
  8. FORTEO [Suspect]
     Indication: OSTEOPOROSIS
     Dosage: 20 UG, QD
     Route: 058
     Dates: start: 20111223, end: 20120103
  9. DIAMICRON [Concomitant]
  10. DOGMATYL [Concomitant]
  11. PROZAC [Concomitant]
  12. TENORMIN [Concomitant]

REACTIONS (2)
  - HYPERKALAEMIA [None]
  - BLOOD CALCIUM ABNORMAL [None]
